FAERS Safety Report 24335701 (Version 2)
Quarter: 2024Q4

REPORT INFORMATION
  Report Type: Spontaneous
  Country: GB (occurrence: GB)
  Receive Date: 20240919
  Receipt Date: 20241009
  Transmission Date: 20250114
  Serious: Yes (Other)
  Sender: TAKEDA
  Company Number: GB-TAKEDA-2024TUS085334

PATIENT
  Sex: Female

DRUGS (2)
  1. LISDEXAMFETAMINE DIMESYLATE [Suspect]
     Active Substance: LISDEXAMFETAMINE DIMESYLATE
     Indication: Product used for unknown indication
     Dosage: UNK
     Route: 065
  2. LISDEXAMFETAMINE DIMESYLATE [Suspect]
     Active Substance: LISDEXAMFETAMINE DIMESYLATE
     Indication: Product used for unknown indication
     Dosage: UNK
     Route: 065

REACTIONS (9)
  - Surgery [Unknown]
  - Drug ineffective [Unknown]
  - Metabolic disorder [Unknown]
  - Weight increased [Unknown]
  - Disturbance in attention [Unknown]
  - Depressed mood [Unknown]
  - Fatigue [Unknown]
  - Affect lability [Unknown]
  - Somnolence [Unknown]
